FAERS Safety Report 21961406 (Version 2)
Quarter: 2023Q1

REPORT INFORMATION
  Report Type: Spontaneous
  Country: DE (occurrence: DE)
  Receive Date: 20230207
  Receipt Date: 20230208
  Transmission Date: 20230417
  Serious: Yes (Other)
  Sender: FDA-Public Use
  Company Number: DE-TORRENT-00023973

PATIENT
  Sex: Male
  Weight: 110 kg

DRUGS (2)
  1. CANDESARTAN [Suspect]
     Active Substance: CANDESARTAN
     Indication: Hypertension
     Dosage: 16 MILLIGRAM, QD, ONCE DAILY
     Route: 065
     Dates: start: 202212
  2. HYGROTON [Suspect]
     Active Substance: CHLORTHALIDONE
     Indication: Hypertension
     Dosage: 25 MILLIGRAM, QD, ONCE DAILY
     Route: 065
     Dates: start: 202212

REACTIONS (2)
  - Erectile dysfunction [Not Recovered/Not Resolved]
  - Vertigo [Recovered/Resolved]

NARRATIVE: CASE EVENT DATE: 20221201
